FAERS Safety Report 7930365-5 (Version None)
Quarter: 2011Q4

REPORT INFORMATION
  Report Type: 
  Country: None (occurrence: None)
  Receive Date: 20111121
  Receipt Date: 20110819
  Transmission Date: 20120403
  Serious: No
  Sender: FDA-Public Use
  Company Number: US-BAYER-2011-079441

PATIENT
  Age: 34 Year
  Sex: Female
  Weight: 52 kg

DRUGS (1)
  1. ALEVE (CAPLET) [Suspect]
     Dosage: 1 DF, QD
     Route: 048
     Dates: start: 20110628, end: 20110810

REACTIONS (1)
  - PRURITUS GENERALISED [None]
